FAERS Safety Report 5702177-4 (Version None)
Quarter: 2008Q2

REPORT INFORMATION
  Report Type: 
  Country: None (occurrence: None)
  Receive Date: 20080411
  Receipt Date: 20080408
  Transmission Date: 20081010
  Serious: Yes (Hospitalization)
  Sender: FDA-Public Use
  Company Number: GB-ROCHE-557333

PATIENT
  Sex: Female

DRUGS (9)
  1. BONIVA [Suspect]
     Indication: OSTEOPOROSIS
     Route: 065
     Dates: start: 20080101
  2. AMLODIPINE BESYLATE [Concomitant]
  3. LISINOPRIL [Concomitant]
  4. BISOPROLOL FUMARATE [Concomitant]
  5. SIMVASTATIN [Concomitant]
  6. OXYCODONE HCL [Concomitant]
  7. LANSOPROL [Concomitant]
  8. CALCICHEW [Concomitant]
  9. ASPIRIN [Concomitant]

REACTIONS (1)
  - MYOCARDIAL INFARCTION [None]
